FAERS Safety Report 11859723 (Version 1)
Quarter: 2015Q4

REPORT INFORMATION
  Report Type: Spontaneous
  Country: ZA (occurrence: ZA)
  Receive Date: 20151222
  Receipt Date: 20151222
  Transmission Date: 20160305
  Serious: Yes (Other)
  Sender: FDA-Public Use
  Company Number: ZA-ASTRAZENECA-2015SF22731

PATIENT
  Sex: Male
  Weight: 75 kg

DRUGS (1)
  1. SYMBICORD [Suspect]
     Active Substance: BUDESONIDE\FORMOTEROL
     Dosage: 160/4.5MCG / 2 DF, TWO TIMES A DAY
     Route: 055
     Dates: start: 20151120

REACTIONS (6)
  - Stomatitis [Recovering/Resolving]
  - Oral mucosal blistering [Recovering/Resolving]
  - Hypersensitivity [Recovering/Resolving]
  - Throat tightness [Recovering/Resolving]
  - Lip swelling [Recovering/Resolving]
  - Skin exfoliation [Recovering/Resolving]
